FAERS Safety Report 5581765-2 (Version None)
Quarter: 2008Q1

REPORT INFORMATION
  Report Type: 
  Country: None (occurrence: None)
  Receive Date: 20080104
  Receipt Date: 20071221
  Transmission Date: 20080703
  Serious: Yes (Death, Hospitalization, Congenital Anomaly)
  Sender: FDA-Public Use
  Company Number: FR-MERCK-01026157B1

PATIENT
  Age: 0 Day
  Sex: Female
  Weight: 3 kg

DRUGS (10)
  1. COZAAR [Suspect]
     Indication: HYPERTENSION
     Route: 064
     Dates: start: 20000917, end: 20010130
  2. METHYLDOPA [Concomitant]
     Indication: HYPERTENSION
     Route: 064
     Dates: end: 20000101
  3. CLONIDINE HYDROCHLORIDE [Concomitant]
     Indication: HYPERTENSION
     Route: 064
     Dates: end: 20000101
  4. PROPOFOL [Concomitant]
     Indication: ANAESTHESIA
     Route: 064
     Dates: start: 20001206, end: 20001206
  5. ISOFLURANE [Concomitant]
     Indication: ANAESTHESIA
     Route: 064
     Dates: start: 20001206, end: 20001206
  6. CEFATRIZINE [Concomitant]
     Indication: NASOPHARYNGITIS
     Route: 064
     Dates: start: 20001225
  7. ALPHA AMYLASE [Concomitant]
     Indication: NASOPHARYNGITIS
     Route: 064
     Dates: start: 20001225
  8. ACETAMINOPHEN [Concomitant]
     Indication: NASOPHARYNGITIS
     Route: 064
  9. HELICIDINE [Concomitant]
     Indication: NASOPHARYNGITIS
     Route: 064
  10. TRIAMCINOLONE ACETONIDE [Concomitant]
     Indication: NASOPHARYNGITIS
     Route: 064

REACTIONS (3)
  - CONGENITAL ANOMALY [None]
  - MULTI-ORGAN FAILURE [None]
  - RENAL FAILURE ACUTE [None]
